FAERS Safety Report 6861064-9 (Version None)
Quarter: 2010Q3

REPORT INFORMATION
  Report Type: 
  Country: None (occurrence: None)
  Receive Date: 20100720
  Receipt Date: 20100706
  Transmission Date: 20110219
  Serious: Yes (Other)
  Sender: FDA-Public Use
  Company Number: PHEH2010US03506

PATIENT
  Sex: Male

DRUGS (1)
  1. AREDIA [Suspect]
     Indication: MULTIPLE MYELOMA
     Dosage: 90 MG, UNK
     Dates: start: 20000711, end: 20011127

REACTIONS (2)
  - NEUROPATHY PERIPHERAL [None]
  - PERIPHERAL ARTERIAL OCCLUSIVE DISEASE [None]
